FAERS Safety Report 9628756 (Version 1)
Quarter: 2013Q4

REPORT INFORMATION
  Report Type: Spontaneous
  Country: AU (occurrence: AU)
  Receive Date: 20131017
  Receipt Date: 20131017
  Transmission Date: 20140711
  Serious: Yes (Other)
  Sender: FDA-Public Use
  Company Number: AU-MYLANLABS-2013S1022622

PATIENT
  Sex: Male

DRUGS (4)
  1. ESCITALOPRAM [Suspect]
     Indication: DEMENTIA ALZHEIMER^S TYPE
     Route: 065
  2. QUETIAPINE [Suspect]
     Indication: DEMENTIA ALZHEIMER^S TYPE
     Dosage: INCREASING DOSES
     Route: 065
  3. SODIUM VALPROATE [Suspect]
     Indication: PARTIAL SEIZURES
     Route: 065
  4. MIRTAZAPINE [Concomitant]
     Route: 065

REACTIONS (3)
  - Partial seizures [Unknown]
  - Sedation [Unknown]
  - Hypernatraemia [Unknown]
